FAERS Safety Report 13490596 (Version 3)
Quarter: 2017Q2

REPORT INFORMATION
  Report Type: Spontaneous
  Country: FR (occurrence: FR)
  Receive Date: 20170427
  Receipt Date: 20170509
  Transmission Date: 20170830
  Serious: Yes (Hospitalization)
  Sender: FDA-Public Use
  Company Number: FR-ROCHE-1923608

PATIENT
  Age: 5 Year
  Sex: Male

DRUGS (4)
  1. HYDROCORTISONE. [Suspect]
     Active Substance: HYDROCORTISONE
     Indication: HYPOPITUITARISM
     Route: 065
     Dates: start: 201505
  2. NUTROPIN AQ [Suspect]
     Active Substance: SOMATROPIN
     Indication: GROWTH HORMONE DEFICIENCY
     Dosage: STRENGTH: 10 MG/2 ML
     Route: 058
     Dates: start: 20150608, end: 20160204
  3. NUTROPIN AQ [Suspect]
     Active Substance: SOMATROPIN
     Dosage: STRENGTH: 10 MG/2 ML
     Route: 058
  4. LEVOTHYROX [Suspect]
     Active Substance: LEVOTHYROXINE
     Indication: HYPOPITUITARISM
     Route: 065
     Dates: start: 201505

REACTIONS (4)
  - Blood creatine phosphokinase increased [Recovered/Resolved]
  - Muscular weakness [Recovered/Resolved]
  - Amyotrophy [Recovered/Resolved]
  - Hepatomegaly [Recovered/Resolved]

NARRATIVE: CASE EVENT DATE: 20160129
